FAERS Safety Report 8884001 (Version 1)
Quarter: 2012Q4

REPORT INFORMATION
  Report Type: 
  Country: US (occurrence: US)
  Receive Date: 20121102
  Receipt Date: 20121102
  Transmission Date: 20130627
  Serious: No
  Sender: FDA-Public Use
  Company Number: US-ASTRAZENECA-2012SE26367

PATIENT
  Age: 43 Year
  Sex: Male
  Weight: 99.8 kg

DRUGS (4)
  1. CRESTOR [Suspect]
     Indication: BLOOD CHOLESTEROL ABNORMAL
     Route: 048
     Dates: start: 2007
  2. ZYRTEC [Concomitant]
     Indication: MULTIPLE ALLERGIES
  3. REBIFF [Concomitant]
     Indication: MULTIPLE SCLEROSIS
  4. VENLAFAXINE [Concomitant]

REACTIONS (1)
  - Multiple sclerosis [Unknown]
